FAERS Safety Report 4397368-1 (Version None)
Quarter: 2004Q3

REPORT INFORMATION
  Report Type: 
  Country: None (occurrence: None)
  Receive Date: 20040714
  Receipt Date: 20040420
  Transmission Date: 20050211
  Serious: Yes (Hospitalization)
  Sender: FDA-Public Use
  Company Number: GB-BRISTOL-MYERS SQUIBB COMPANY-12564977

PATIENT
  Age: 25 Year
  Sex: Male

DRUGS (4)
  1. ARIPIPRAZOLE [Suspect]
     Indication: SCHIZOPHRENIA
     Dosage: 15MG 23-MAR-04 TO 30-MAR-04, INCREASED TO 30MG 30-MAR-04 TO 11-APR-04.
     Route: 048
     Dates: start: 20040323, end: 20040411
  2. VENLAFAXINE HCL [Concomitant]
     Dates: start: 20030728
  3. ACETAMINOPHEN [Concomitant]
     Dates: start: 20040329
  4. ZOPICLONE [Concomitant]
     Dates: start: 20040405

REACTIONS (1)
  - SCHIZOPHRENIA [None]
